FAERS Safety Report 6730436-5 (Version None)
Quarter: 2010Q2

REPORT INFORMATION
  Report Type: 
  Country: None (occurrence: None)
  Receive Date: 20100518
  Receipt Date: 20100511
  Transmission Date: 20101027
  Serious: Yes (Other)
  Sender: FDA-Public Use
  Company Number: B0652275A

PATIENT
  Sex: Male

DRUGS (1)
  1. ZOVIRAX [Suspect]
     Indication: ENCEPHALITIS HERPES
     Dosage: 800MG THREE TIMES PER DAY
     Route: 042

REACTIONS (2)
  - CATHETER SITE NECROSIS [None]
  - OEDEMA PERIPHERAL [None]
